FAERS Safety Report 4627001-2 (Version None)
Quarter: 2005Q1

REPORT INFORMATION
  Report Type: 
  Country: None (occurrence: None)
  Receive Date: 20050331
  Receipt Date: 20050323
  Transmission Date: 20050727
  Serious: Yes (Other)
  Sender: FDA-Public Use
  Company Number: 2005049630

PATIENT
  Age: 59 Year
  Sex: Male
  Weight: 86 kg

DRUGS (1)
  1. GABAPENTIN [Suspect]
     Dosage: 900 MG (300 MG 3 IN 1 D) ORAL
     Route: 048
     Dates: start: 20041229, end: 20050115

REACTIONS (3)
  - BURNING SENSATION [None]
  - PAIN [None]
  - PARAESTHESIA [None]
